FAERS Safety Report 4331523-1 (Version None)
Quarter: 2004Q1

REPORT INFORMATION
  Report Type: 
  Country: None (occurrence: None)
  Receive Date: 20040331
  Receipt Date: 20040318
  Transmission Date: 20041129
  Serious: Yes (Other)
  Sender: FDA-Public Use
  Company Number: EWC040338456

PATIENT
  Age: 66 Year
  Sex: Female
  Weight: 65 kg

DRUGS (7)
  1. EVISTA [Suspect]
     Indication: OSTEOPOROSIS
     Dosage: 60 MG DAY
  2. MAGNOSOLV [Concomitant]
  3. MAXI-KALZ VIT. D3 [Concomitant]
  4. SORTIS (ATORVASTATIN CALCIUM) [Concomitant]
  5. TOCOPHEROL CONCENTRATE CAP [Concomitant]
  6. SELEN (SODIUM SELENITE) [Concomitant]
  7. ZINC [Concomitant]

REACTIONS (3)
  - BREAST CANCER STAGE I [None]
  - OESTROGEN RECEPTOR ASSAY POSITIVE [None]
  - PROGESTERONE RECEPTOR ASSAY NEGATIVE [None]
